FAERS Safety Report 11152196 (Version 1)
Quarter: 2015Q2

REPORT INFORMATION
  Report Type: Spontaneous
  Country: US (occurrence: None)
  Receive Date: 20150529
  Receipt Date: 20150529
  Transmission Date: 20150821
  Serious: No
  Sender: FDA-Public Use
  Company Number: None

PATIENT
  Age: 27 Year
  Sex: Male
  Weight: 87.09 kg

DRUGS (2)
  1. PROVIGIEL [Concomitant]
  2. ZUBSOLV [Suspect]
     Active Substance: BUPRENORPHINE HYDROCHLORIDE\NALOXONE HYDROCHLORIDE
     Indication: DRUG DEPENDENCE
     Dosage: TWICE DAILY, TAKEN UNDER THE TONGUE
     Dates: start: 20150525, end: 20150527

REACTIONS (5)
  - Memory impairment [None]
  - Nausea [None]
  - Feeling abnormal [None]
  - Lethargy [None]
  - Headache [None]

NARRATIVE: CASE EVENT DATE: 20150526
